FAERS Safety Report 8968216 (Version 1)
Quarter: 2012Q4

REPORT INFORMATION
  Report Type: 
  Country: PL (occurrence: PL)
  Receive Date: 20121217
  Receipt Date: 20121217
  Transmission Date: 20130627
  Serious: Yes (Hospitalization)
  Sender: FDA-Public Use
  Company Number: PHHY2012PL114209

PATIENT
  Age: 65 Year
  Sex: Female

DRUGS (14)
  1. SIMULECT [Suspect]
     Indication: RENAL TRANSPLANT
     Dosage: 20 mg, BID
     Route: 042
  2. MYFORTIC [Suspect]
     Indication: RENAL TRANSPLANT
     Dosage: 360 mg, BID
  3. NEORAL [Suspect]
     Indication: RENAL TRANSPLANT
     Dosage: 50 mg, UNK
  4. ENCORTON [Concomitant]
  5. RANIGAST [Concomitant]
  6. BISOCARD [Concomitant]
  7. AMLOZEK [Concomitant]
  8. CALPEROS [Concomitant]
  9. ALFADIOL [Concomitant]
  10. BISEPTOL [Concomitant]
  11. LAKTOMAG B6 [Concomitant]
  12. VALCYTE [Concomitant]
  13. SOLUMEDROL [Concomitant]
  14. PROGRAF [Concomitant]

REACTIONS (9)
  - Decreased appetite [Unknown]
  - Nephropathy toxic [Unknown]
  - Toxicity to various agents [Unknown]
  - Azotaemia [Unknown]
  - Weight decreased [Unknown]
  - Dehydration [Unknown]
  - Tongue dry [Unknown]
  - Dry skin [Unknown]
  - Asthenia [Unknown]
